FAERS Safety Report 8561854-0 (Version None)
Quarter: 2012Q3

REPORT INFORMATION
  Report Type: 
  Country: None (occurrence: None)
  Receive Date: 20120802
  Receipt Date: 20120710
  Transmission Date: 20120928
  Serious: No
  Sender: FDA-Public Use
  Company Number: US-AMGEN-USASP2012039218

PATIENT
  Age: 63 Year
  Sex: Female

DRUGS (2)
  1. ENBREL [Suspect]
     Indication: PSORIASIS
  2. ENBREL [Suspect]
     Indication: RHEUMATOID ARTHRITIS
     Dosage: 25 MG, 2 TIMES/WK
     Dates: start: 20110705

REACTIONS (9)
  - HOT FLUSH [None]
  - INJECTION SITE PAIN [None]
  - TOOTH EXTRACTION [None]
  - INJECTION SITE LACERATION [None]
  - WRONG TECHNIQUE IN DRUG USAGE PROCESS [None]
  - BURSITIS [None]
  - PSORIASIS [None]
  - GALLBLADDER OPERATION [None]
  - TEETH BRITTLE [None]
